FAERS Safety Report 7945285-X (Version None)
Quarter: 2011Q4

REPORT INFORMATION
  Report Type: 
  Country: None (occurrence: None)
  Receive Date: 20111129
  Receipt Date: 20110121
  Transmission Date: 20120403
  Serious: No
  Sender: FDA-Public Use
  Company Number: US-GLAXOSMITHKLINE-A0894710A

PATIENT
  Sex: Male

DRUGS (1)
  1. BUPROPION HCL [Suspect]
     Route: 048

REACTIONS (4)
  - PRODUCT QUALITY ISSUE [None]
  - MUSCULOSKELETAL DISCOMFORT [None]
  - RESTLESSNESS [None]
  - DIZZINESS [None]
